FAERS Safety Report 17393888 (Version 1)
Quarter: 2020Q1

REPORT INFORMATION
  Report Type: Spontaneous
  Country: ES (occurrence: ES)
  Receive Date: 20200210
  Receipt Date: 20200210
  Transmission Date: 20200409
  Serious: Yes (Other)
  Sender: FDA-Public Use
  Company Number: ES-CELLTRION INC.-2020ES018388

PATIENT

DRUGS (2)
  1. CHLORAMBUCIL [Concomitant]
     Active Substance: CHLORAMBUCIL
     Indication: B-CELL LYMPHOMA
     Dosage: UNK
  2. RITUXIMAB (UNKNOWN) [Suspect]
     Active Substance: RITUXIMAB
     Indication: B-CELL LYMPHOMA
     Dosage: 375 MG/M2, 1/WEEK
     Route: 041

REACTIONS (1)
  - B-cell lymphoma recurrent [Recovered/Resolved]
